FAERS Safety Report 13400193 (Version 8)
Quarter: 2024Q1

REPORT INFORMATION
  Report Type: Spontaneous
  Country: US (occurrence: US)
  Receive Date: 20170404
  Receipt Date: 20240312
  Transmission Date: 20240410
  Serious: No
  Sender: FDA-Public Use
  Company Number: US-PFIZER INC-2017082103

PATIENT
  Age: 68 Year
  Sex: Female
  Weight: 91 kg

DRUGS (10)
  1. XELJANZ XR [Suspect]
     Active Substance: TOFACITINIB CITRATE
     Indication: Rheumatoid arthritis
     Dosage: 11 MG, 1X/DAY
     Route: 048
     Dates: start: 201612
  2. XELJANZ XR [Suspect]
     Active Substance: TOFACITINIB CITRATE
     Dosage: 11 MG, 1X/DAY
     Route: 048
     Dates: start: 201612
  3. CARVEDILOL [Concomitant]
     Active Substance: CARVEDILOL
  4. PANTOPRAZOLE [Concomitant]
     Active Substance: PANTOPRAZOLE
  5. ALEVE [Concomitant]
     Active Substance: NAPROXEN SODIUM
  6. CALTRATE [Concomitant]
     Active Substance: CALCIUM CARBONATE
  7. SYNTHROID [Concomitant]
     Active Substance: LEVOTHYROXINE SODIUM
  8. LOVASTATIN [Concomitant]
     Active Substance: LOVASTATIN
  9. VENLAFAXINE [Concomitant]
     Active Substance: VENLAFAXINE HYDROCHLORIDE
  10. VALACYCLOVIR [Concomitant]
     Active Substance: VALACYCLOVIR HYDROCHLORIDE

REACTIONS (5)
  - Therapeutic response unexpected [Unknown]
  - Nasopharyngitis [Recovered/Resolved]
  - Upper-airway cough syndrome [Recovered/Resolved]
  - Condition aggravated [Unknown]
  - Blood pressure abnormal [Recovering/Resolving]

NARRATIVE: CASE EVENT DATE: 20170201
